FAERS Safety Report 8458135-2 (Version None)
Quarter: 2012Q2

REPORT INFORMATION
  Report Type: 
  Country: None (occurrence: None)
  Receive Date: 20120622
  Receipt Date: 20120613
  Transmission Date: 20120825
  Serious: Yes (Other)
  Sender: FDA-Public Use
  Company Number: CA-JNJFOC-20120607533

PATIENT
  Sex: Male
  Weight: 82 kg

DRUGS (2)
  1. REMICADE [Suspect]
     Indication: NETHERTON'S SYNDROME
     Route: 042
     Dates: start: 20120405
  2. REMICADE [Suspect]
     Route: 042
     Dates: start: 20120223

REACTIONS (2)
  - WRIST FRACTURE [None]
  - FALL [None]
